FAERS Safety Report 11981057 (Version 12)
Quarter: 2017Q1

REPORT INFORMATION
  Report Type: Spontaneous
  Country: US (occurrence: US)
  Receive Date: 20160129
  Receipt Date: 20170124
  Transmission Date: 20170428
  Serious: Yes (Hospitalization, Disabling)
  Sender: FDA-Public Use
  Company Number: US-ACTELION PHARMACEUTICALS US, INC.-A-NJ2016-130836

PATIENT
  Age: 70 Year
  Sex: Female

DRUGS (10)
  1. TREPROSTINIL DIOLAMIN [Concomitant]
     Active Substance: TREPROSTINIL DIOLAMINE
  2. RIOCIGUAT [Concomitant]
     Active Substance: RIOCIGUAT
  3. VENTAVIS [Suspect]
     Active Substance: ILOPROST
     Indication: PULMONARY ARTERIAL HYPERTENSION
     Dosage: 5 MCG, 6-9XDAY
     Route: 055
     Dates: start: 20110401
  4. TRACLEER [Suspect]
     Active Substance: BOSENTAN
     Indication: PULMONARY ARTERIAL HYPERTENSION
     Dosage: 125 MG, BID
     Route: 048
     Dates: start: 20100309
  5. SILDENAFIL. [Concomitant]
     Active Substance: SILDENAFIL
  6. COUMADIN [Concomitant]
     Active Substance: WARFARIN SODIUM
  7. VENTAVIS [Suspect]
     Active Substance: ILOPROST
     Dosage: UNK, QID
     Route: 055
  8. LETAIRIS [Concomitant]
     Active Substance: AMBRISENTAN
  9. DILTIAZEM. [Concomitant]
     Active Substance: DILTIAZEM
  10. VENTAVIS [Suspect]
     Active Substance: ILOPROST
     Dosage: 5 MCG, 6-8 X/DAY
     Route: 055

REACTIONS (17)
  - Teeth brittle [Unknown]
  - Stent placement [Unknown]
  - Lip swelling [Unknown]
  - Therapy non-responder [Unknown]
  - Cheilitis [Unknown]
  - Malaise [Unknown]
  - Asthenia [Unknown]
  - Oedema peripheral [Unknown]
  - Anxiety [Unknown]
  - Dehydration [Unknown]
  - Dyspnoea [Unknown]
  - Depression [Unknown]
  - Pneumonia [Unknown]
  - Choking [Unknown]
  - Dyspnoea exertional [Unknown]
  - Tooth fracture [Unknown]
  - Drug administration error [Unknown]
